FAERS Safety Report 12618297 (Version 3)
Quarter: 2016Q3

REPORT INFORMATION
  Report Type: Spontaneous
  Country: GB (occurrence: GB)
  Receive Date: 20160803
  Receipt Date: 20160826
  Transmission Date: 20161109
  Serious: Yes (Death, Hospitalization, Other)
  Sender: FDA-Public Use
  Company Number: PHFR2016GB006223

PATIENT
  Age: 67 Year
  Sex: Male
  Weight: 93.2 kg

DRUGS (2)
  1. TRAMETINIB [Suspect]
     Active Substance: TRAMETINIB
     Indication: PRODUCT USED FOR UNKNOWN INDICATION
     Dosage: 2 MG, QD
     Route: 048
     Dates: end: 20160725
  2. DABRAFENIB [Suspect]
     Active Substance: DABRAFENIB
     Indication: PRODUCT USED FOR UNKNOWN INDICATION
     Dosage: 300 MG, QD
     Route: 048
     Dates: end: 20160725

REACTIONS (7)
  - Incontinence [Fatal]
  - Dysphagia [Unknown]
  - Nervous system disorder [Fatal]
  - Mobility decreased [Fatal]
  - Confusional state [Fatal]
  - Angiopathy [Unknown]
  - Metastases to meninges [Fatal]

NARRATIVE: CASE EVENT DATE: 20160722
